FAERS Safety Report 5626886-0 (Version None)
Quarter: 2008Q1

REPORT INFORMATION
  Report Type: 
  Country: None (occurrence: None)
  Receive Date: 20080212
  Receipt Date: 20080204
  Transmission Date: 20080703
  Serious: Yes (Other)
  Sender: FDA-Public Use
  Company Number: GXKR2008TR01365

PATIENT
  Age: 60 Year
  Sex: Female

DRUGS (1)
  1. DICLOFENAC (NGX)(DICLOFENAC) SOLUTION FOR INJECTION [Suspect]
     Indication: BACK PAIN
     Dosage: INTRAMUSCULAR
     Route: 030

REACTIONS (7)
  - EMBOLIA CUTIS MEDICAMENTOSA [None]
  - INJECTION SITE NECROSIS [None]
  - INJECTION SITE PAIN [None]
  - INJECTION SITE REACTION [None]
  - SCAR [None]
  - SKIN GRAFT [None]
  - SKIN HYPERTROPHY [None]
